FAERS Safety Report 5209423-4 (Version None)
Quarter: 2007Q1

REPORT INFORMATION
  Report Type: 
  Country: None (occurrence: None)
  Receive Date: 20070116
  Receipt Date: 20070103
  Transmission Date: 20070707
  Serious: Yes (Hospitalization)
  Sender: FDA-Public Use
  Company Number: US-ELI_LILLY_AND_COMPANY-US200701000500

PATIENT
  Age: 78 Year
  Sex: Female

DRUGS (1)
  1. FORTEO [Suspect]
     Indication: PROPHYLAXIS
     Dosage: 20 UG, DAILY (1/D)
     Route: 058
     Dates: start: 20050401

REACTIONS (5)
  - CARDIAC FAILURE CONGESTIVE [None]
  - CONTUSION [None]
  - CYSTITIS [None]
  - FALL [None]
  - STENT OCCLUSION [None]
